FAERS Safety Report 9849825 (Version 1)
Quarter: 2013Q4

REPORT INFORMATION
  Report Type: Spontaneous
  Country: US (occurrence: None)
  Receive Date: 20131226
  Receipt Date: 20131226
  Transmission Date: 20140711
  Serious: Yes (Other)
  Sender: FDA-Public Use
  Company Number: PHEH2013US005086

PATIENT
  Age: 68 Year
  Sex: Female

DRUGS (1)
  1. ZOMETA [Suspect]
     Indication: PLASMA CELL MYELOMA

REACTIONS (3)
  - Pyrexia [None]
  - Dyspnoea [None]
  - Confusional state [None]
